FAERS Safety Report 18772053 (Version 1)
Quarter: 2021Q1

REPORT INFORMATION
  Report Type: Report from Study
  Country: US (occurrence: US)
  Receive Date: 20210122
  Receipt Date: 20210122
  Transmission Date: 20210419
  Serious: Yes (Death, Other)
  Sender: FDA-Public Use
  Company Number: US-ASTRAZENECA-2021A010746

PATIENT
  Age: 28017 Day
  Sex: Male
  Weight: 103 kg

DRUGS (2)
  1. CALQUENCE [Suspect]
     Active Substance: ACALABRUTINIB
     Indication: MANTLE CELL LYMPHOMA
     Route: 048
     Dates: start: 20201030, end: 20210117
  2. CALQUENCE [Suspect]
     Active Substance: ACALABRUTINIB
     Indication: BURKITT^S LYMPHOMA STAGE I
     Route: 048
     Dates: start: 20201030, end: 20210117

REACTIONS (2)
  - COVID-19 [Unknown]
  - Death [Fatal]

NARRATIVE: CASE EVENT DATE: 20201223
